FAERS Safety Report 15814890 (Version 1)
Quarter: 2019Q1

REPORT INFORMATION
  Report Type: Spontaneous
  Country: FR (occurrence: FR)
  Receive Date: 20190111
  Receipt Date: 20190111
  Transmission Date: 20190417
  Serious: Yes (Hospitalization, Other)
  Sender: FDA-Public Use
  Company Number: FR-ACCORD-101315

PATIENT
  Age: 79 Year
  Sex: Male
  Weight: 56 kg

DRUGS (5)
  1. SECTRAL [Concomitant]
     Active Substance: ACEBUTOLOL HYDROCHLORIDE
     Dosage: 200 MG, UNK
     Route: 048
  2. CRESTOR [Concomitant]
     Active Substance: ROSUVASTATIN CALCIUM
     Dosage: 100 MG, UNK
     Route: 048
  3. CLOPIDOGREL [Suspect]
     Active Substance: CLOPIDOGREL BISULFATE
     Indication: PRODUCT USED FOR UNKNOWN INDICATION
     Route: 048
  4. INEXIUM [Concomitant]
     Active Substance: ESOMEPRAZOLE
     Indication: GASTRIC ULCER
     Route: 048
  5. APIXABAN [Suspect]
     Active Substance: APIXABAN
     Indication: PRODUCT USED FOR UNKNOWN INDICATION
     Route: 048

REACTIONS (5)
  - Hypotension [Recovered/Resolved]
  - Melaena [Recovered/Resolved]
  - Haemorrhage [Recovered/Resolved]
  - Duodenal ulcer haemorrhage [Recovered/Resolved]
  - Upper gastrointestinal haemorrhage [Recovered/Resolved]

NARRATIVE: CASE EVENT DATE: 20171117
